FAERS Safety Report 26085806 (Version 1)
Quarter: 2025Q4

REPORT INFORMATION
  Report Type: Spontaneous
  Country: EU (occurrence: EU)
  Receive Date: 20251125
  Receipt Date: 20251125
  Transmission Date: 20260117
  Serious: Yes (Hospitalization)
  Sender: MERCK SHARP & DOHME LLC
  Company Number: None

PATIENT
  Age: 64 Year
  Sex: Female

DRUGS (6)
  1. ERTAPENEM [Suspect]
     Active Substance: ERTAPENEM
     Indication: Pyelonephritis acute
     Route: 042
     Dates: start: 20250826, end: 20250904
  2. PACLITAXEL [Concomitant]
     Active Substance: PACLITAXEL
     Indication: Cervix cancer metastatic
     Dosage: TIME INTERVAL: 1 TOTAL
     Route: 042
     Dates: start: 20250818, end: 20250818
  3. PIPERACILLIN AND TAZOBACTAM [Suspect]
     Active Substance: PIPERACILLIN SODIUM\TAZOBACTAM SODIUM
     Indication: Pyelonephritis
     Route: 042
     Dates: start: 20250826, end: 20250904
  4. BEVACIZUMAB [Concomitant]
     Active Substance: BEVACIZUMAB
     Indication: Cervix cancer metastatic
     Dosage: TIME INTERVAL: 1 TOTAL
     Route: 042
     Dates: start: 20250818, end: 20250818
  5. CIPROFLOXACIN [Suspect]
     Active Substance: CIPROFLOXACIN
     Indication: Pyelonephritis acute
     Route: 048
     Dates: start: 20250904, end: 20250909
  6. TOPOTECAN [Concomitant]
     Active Substance: TOPOTECAN HYDROCHLORIDE
     Indication: Cervix cancer metastatic
     Dosage: TIME INTERVAL: 1 TOTAL
     Route: 042
     Dates: start: 20250818, end: 20250818

REACTIONS (2)
  - Renal tubular necrosis [Recovered/Resolved]
  - Acute kidney injury [Recovered/Resolved]

NARRATIVE: CASE EVENT DATE: 20250910
